FAERS Safety Report 8355018-3 (Version None)
Quarter: 2012Q2

REPORT INFORMATION
  Report Type: 
  Country: None (occurrence: None)
  Receive Date: 20120511
  Receipt Date: 20120508
  Transmission Date: 20120825
  Serious: Yes (Other)
  Sender: FDA-Public Use
  Company Number: US-PFIZER INC-2012093552

PATIENT
  Sex: Male

DRUGS (6)
  1. CALCIUM CARBONATE [Concomitant]
     Dosage: 1250 MG, DAILY
  2. SINGULAIR [Concomitant]
     Dosage: 10 MG, 1 TABLET BY MOUTH EVERY DAY
  3. PROVENTIL-HFA [Concomitant]
     Dosage: 108 (90 BASE) MCG/ACT, ONE TO TWO PUFFS EVERY 4 HOURS AS NEEDED
  4. LIPITOR [Suspect]
     Dosage: 10 MG, 1 TABLET BY MOUTH EVERY DAY (10 MG ONCE DAILY)
     Route: 048
  5. DUONEB [Concomitant]
     Dosage: 2.5-0.5 MG/3ML, AS DIRECTED
  6. ADVAIR DISKUS 100/50 [Concomitant]
     Dosage: 250-50 MCG/DOSE MISC, 1 INHALATION  TWICE A DAY

REACTIONS (3)
  - BRONCHITIS [None]
  - HYPERCHOLESTEROLAEMIA [None]
  - ASTHMA [None]
